FAERS Safety Report 22285273 (Version 1)
Quarter: 2023Q2

REPORT INFORMATION
  Report Type: Spontaneous
  Country: US (occurrence: None)
  Receive Date: 20230503
  Receipt Date: 20230503
  Transmission Date: 20230721
  Serious: Yes (Other)
  Sender: FDA-Public Use
  Company Number: None

PATIENT
  Age: 65 Year
  Sex: Female
  Weight: 74.84 kg

DRUGS (1)
  1. LEQVIO [Suspect]
     Active Substance: INCLISIRAN SODIUM
     Indication: Hypercholesterolaemia

REACTIONS (8)
  - Albumin urine present [None]
  - Cough [None]
  - Plasma cell myeloma [None]
  - Nausea [None]
  - Vomiting [None]
  - Fatigue [None]
  - Protein urine present [None]
  - Creatinine urine increased [None]
